FAERS Safety Report 8004694-3 (Version None)
Quarter: 2011Q4

REPORT INFORMATION
  Report Type: 
  Country: None (occurrence: None)
  Receive Date: 20111223
  Receipt Date: 20111222
  Transmission Date: 20120403
  Serious: Yes (Other)
  Sender: FDA-Public Use
  Company Number: NL-JNJFOC-20111112463

PATIENT
  Sex: Female

DRUGS (7)
  1. CETIRIZINE HCL [Concomitant]
     Indication: PREMEDICATION
     Route: 065
  2. REMICADE [Suspect]
     Indication: INFLAMMATORY BOWEL DISEASE
     Route: 042
     Dates: start: 20100201
  3. REMICADE [Suspect]
     Route: 042
     Dates: start: 20110501
  4. HYDROCORTISONE [Concomitant]
     Indication: PREMEDICATION
     Route: 065
  5. REMICADE [Suspect]
     Route: 042
     Dates: start: 20110901
  6. REMICADE [Suspect]
     Route: 042
     Dates: start: 20111101
  7. REMICADE [Suspect]
     Route: 042
     Dates: start: 20110701

REACTIONS (3)
  - MATERNAL EXPOSURE DURING PREGNANCY [None]
  - INFUSION RELATED REACTION [None]
  - FACE OEDEMA [None]
